FAERS Safety Report 15169162 (Version 1)
Quarter: 2018Q3

REPORT INFORMATION
  Report Type: Spontaneous
  Country: FR (occurrence: FR)
  Receive Date: 20180720
  Receipt Date: 20180720
  Transmission Date: 20181010
  Serious: Yes (Hospitalization)
  Sender: FDA-Public Use
  Company Number: FR-TEVA-2018-FR-929092

PATIENT
  Age: 86 Year
  Sex: Male
  Weight: 83 kg

DRUGS (4)
  1. FUROSEMIDE. [Suspect]
     Active Substance: FUROSEMIDE
     Indication: HYPERTENSION
     Dosage: 250 MILLIGRAM DAILY; JUSQU^AU 08/06/2018 PUIS 125MG MATIN ET 80MG MIDI
     Route: 048
     Dates: start: 20180101
  2. REPAGLINIDE. [Concomitant]
     Active Substance: REPAGLINIDE
     Indication: TYPE 2 DIABETES MELLITUS
     Dosage: 2 MILLIGRAM DAILY;
     Route: 048
     Dates: start: 20180101, end: 20180608
  3. CERIS 20 MG, COMPRIM? ENROB? [Concomitant]
     Indication: URINARY INCONTINENCE
     Dosage: 1 DOSAGE FORMS DAILY;
     Route: 048
     Dates: start: 20180101, end: 20180608
  4. DIFFU K [Suspect]
     Active Substance: POTASSIUM CHLORIDE
     Indication: MINERAL SUPPLEMENTATION
     Dosage: 12 DOSAGE FORMS DAILY; JUSQU^AU 08/06/2018 PUIS 5 FORMES PHARMACEUTIQUES 3 FOIS/J
     Route: 048
     Dates: start: 20180101

REACTIONS (1)
  - Cardiac failure [Recovered/Resolved]

NARRATIVE: CASE EVENT DATE: 20180614
